FAERS Safety Report 20631958 (Version 4)
Quarter: 2022Q3

REPORT INFORMATION
  Report Type: Spontaneous
  Country: US (occurrence: US)
  Receive Date: 20220324
  Receipt Date: 20220719
  Transmission Date: 20221026
  Serious: Yes (Other)
  Sender: FDA-Public Use
  Company Number: US-ALXN-A202203719

PATIENT
  Sex: Male

DRUGS (2)
  1. SOLIRIS [Suspect]
     Active Substance: ECULIZUMAB
     Indication: Thrombotic microangiopathy
     Dosage: UNK
     Route: 065
  2. SOLIRIS [Suspect]
     Active Substance: ECULIZUMAB
     Indication: Off label use

REACTIONS (12)
  - BK virus infection [Unknown]
  - Condition aggravated [Unknown]
  - Blindness unilateral [Unknown]
  - Malaise [Unknown]
  - Tachycardia [Unknown]
  - Off label use [Unknown]
  - Eye inflammation [Unknown]
  - Urinary tract disorder [Not Recovered/Not Resolved]
  - Epistaxis [Unknown]
  - Hypersensitivity [Unknown]
  - Vision blurred [Unknown]
  - Headache [Unknown]

NARRATIVE: CASE EVENT DATE: 20220301
